FAERS Safety Report 5487921-6 (Version None)
Quarter: 2007Q4

REPORT INFORMATION
  Report Type: 
  Country: None (occurrence: None)
  Receive Date: 20071012
  Receipt Date: 20071012
  Transmission Date: 20080405
  Serious: No
  Sender: FDA-Public Use
  Company Number: None

PATIENT
  Age: 37 Year
  Sex: Male
  Weight: 96.1626 kg

DRUGS (2)
  1. ROZEREM [Suspect]
     Indication: SOMNOLENCE
     Dosage: 1 TABLET BEDTIME PO
     Route: 048
     Dates: start: 20070801, end: 20070920
  2. LUNESTA [Concomitant]

REACTIONS (2)
  - ABNORMAL DREAMS [None]
  - UNEVALUABLE EVENT [None]
